FAERS Safety Report 6122537-X (Version None)
Quarter: 2009Q1

REPORT INFORMATION
  Report Type: 
  Country: None (occurrence: None)
  Receive Date: 20090318
  Receipt Date: 20090109
  Transmission Date: 20090719
  Serious: No
  Sender: FDA-Public Use
  Company Number: US-ASTRAZENECA-2009UW00764

PATIENT
  Age: 65 Year
  Sex: Male
  Weight: 79.8 kg

DRUGS (1)
  1. SYMBICORT [Suspect]
     Indication: ASTHMA
     Dosage: 160/4.5 MCG 2 PUFFS
     Route: 055
     Dates: start: 20090108

REACTIONS (1)
  - HYPOAESTHESIA [None]
